FAERS Safety Report 10210521 (Version 1)
Quarter: 2014Q2

REPORT INFORMATION
  Report Type: Spontaneous
  Country: US (occurrence: US)
  Receive Date: 20140602
  Receipt Date: 20140602
  Transmission Date: 20141212
  Serious: No
  Sender: FDA-Public Use
  Company Number: US-ASTRAZENECA-2014SE35278

PATIENT
  Age: 23 Year
  Sex: Male

DRUGS (1)
  1. SYMBICORT [Suspect]
     Dosage: 160/4.5MCG, 2 PUFFS ,TWO TIMES A DAY
     Route: 055
     Dates: start: 2012

REACTIONS (1)
  - Sensation of foreign body [Recovered/Resolved]
